FAERS Safety Report 24360817 (Version 2)
Quarter: 2024Q3

REPORT INFORMATION
  Report Type: Report from Study
  Country: CA (occurrence: CA)
  Receive Date: 20240925
  Receipt Date: 20240930
  Transmission Date: 20241017
  Serious: Yes (Hospitalization, Other)
  Sender: CHIESI
  Company Number: CA-CHIESI-2024CHF06204

PATIENT
  Age: 55 Year
  Sex: Male
  Weight: 74 kg

DRUGS (2)
  1. DEFERIPRONE [Suspect]
     Active Substance: DEFERIPRONE
     Indication: Superficial siderosis of central nervous system
     Dosage: 500 MILLIGRAM, QID
     Route: 048
     Dates: start: 20160628
  2. DEFERIPRONE [Suspect]
     Active Substance: DEFERIPRONE
     Indication: Off label use

REACTIONS (6)
  - Deafness [Unknown]
  - Ear infection [Recovering/Resolving]
  - Sepsis [Recovering/Resolving]
  - Fungal infection [Unknown]
  - Off label use [Recovered/Resolved]
  - Off label use [Recovered/Resolved]

NARRATIVE: CASE EVENT DATE: 20160628
